FAERS Safety Report 19131890 (Version 2)
Quarter: 2022Q2

REPORT INFORMATION
  Report Type: Spontaneous
  Country: CA (occurrence: CA)
  Receive Date: 20210413
  Receipt Date: 20220608
  Transmission Date: 20220721
  Serious: Yes (Other)
  Sender: FDA-Public Use
  Company Number: CA-CIPHER-2018-CA-901477

PATIENT
  Age: 81 Year
  Sex: Female

DRUGS (6)
  1. TRAMADOL HYDROCHLORIDE [Suspect]
     Active Substance: TRAMADOL HYDROCHLORIDE
     Indication: Back pain
  2. CELEBREX [Concomitant]
     Active Substance: CELECOXIB
     Indication: Back pain
  3. CODEINE [Concomitant]
     Active Substance: CODEINE
     Indication: Product used for unknown indication
  4. HYDROXYCHLOROQUINE [Concomitant]
     Active Substance: HYDROXYCHLOROQUINE
     Indication: Product used for unknown indication
  5. IMURAN /00001501 [Concomitant]
     Indication: Product used for unknown indication
  6. XELJANZ [Suspect]
     Active Substance: TOFACITINIB CITRATE
     Indication: Rheumatoid arthritis
     Route: 048

REACTIONS (23)
  - Drug ineffective [Unknown]
  - Dyspnoea [Unknown]
  - Fatigue [Unknown]
  - Gait disturbance [Unknown]
  - Headache [Unknown]
  - Lymphoma [Unknown]
  - Mass [Unknown]
  - Musculoskeletal stiffness [Unknown]
  - Nausea [Unknown]
  - Pain in extremity [Unknown]
  - Abdominal distension [Unknown]
  - Pelvic pain [Unknown]
  - Peripheral swelling [Unknown]
  - Walking aid user [Unknown]
  - Abdominal pain [Unknown]
  - Mobility decreased [Unknown]
  - Back pain [Unknown]
  - Blister [Unknown]
  - Burning sensation [Unknown]
  - Chest pain [Unknown]
  - Condition aggravated [Unknown]
  - Constipation [Unknown]
  - Drug hypersensitivity [Unknown]

NARRATIVE: CASE EVENT DATE: 20160628
